FAERS Safety Report 12611891 (Version 1)
Quarter: 2016Q3

REPORT INFORMATION
  Report Type: Spontaneous
  Country: US (occurrence: US)
  Receive Date: 20160801
  Receipt Date: 20160801
  Transmission Date: 20161109
  Serious: No
  Sender: FDA-Public Use
  Company Number: US-PFIZER INC-3159039

PATIENT
  Age: 67 Year
  Sex: Female
  Weight: 86.18 kg

DRUGS (8)
  1. BONIVA [Concomitant]
     Active Substance: IBANDRONATE SODIUM
     Indication: SUPPLEMENTATION THERAPY
     Dosage: UNK
  2. VITAMIN B2 /00154901/ [Concomitant]
     Indication: PRODUCT USED FOR UNKNOWN INDICATION
     Dosage: DOSAGE UNKNOWN
     Dates: start: 20150501
  3. BONIVA [Concomitant]
     Active Substance: IBANDRONATE SODIUM
     Indication: PAIN
     Dosage: 50 MG, TAKE ONE-TWO A DAY, CAN TAKE 4 A DAY, FREQ: AS NEEDED
     Route: 048
  4. VITAMIN D /00107901/ [Concomitant]
     Active Substance: ERGOCALCIFEROL
     Indication: SUPPLEMENTATION THERAPY
     Dosage: 5000 UNITS, FREQ: 1 DAY; INTERVAL: 1
     Route: 048
     Dates: start: 20150501
  5. PRAVASTATIN. [Concomitant]
     Active Substance: PRAVASTATIN
     Indication: BLOOD CHOLESTEROL
     Dosage: 20 MG, FREQ: 1 DAY; INTERVAL: 1
     Route: 048
     Dates: start: 20140101
  6. FOLIC ACID. [Concomitant]
     Active Substance: FOLIC ACID
     Indication: NEPHROPROTECTIVE THERAPY
     Dosage: 1 MG, FREQ: 1 DAY; INTERVAL: 1
     Route: 048
     Dates: start: 20150501
  7. BONIVA [Concomitant]
     Active Substance: IBANDRONATE SODIUM
     Indication: ARTHRITIS
     Dosage: TAKES THIS IN THE DOCTOR^S OFFICE, FREQ: 1 MONTH; INTERVAL: 3
     Route: 042
     Dates: start: 20150501
  8. METHOTREXATE SODIUM. [Suspect]
     Active Substance: METHOTREXATE SODIUM
     Indication: PSORIATIC ARTHROPATHY
     Dosage: 8 UNITS OF A 1ML SYRINGE, FREQ: 1 WEEK; INTERVAL: 1
     Route: 030
     Dates: start: 20150501

REACTIONS (5)
  - Alopecia [Not Recovered/Not Resolved]
  - Liquid product physical issue [Unknown]
  - Nausea [Not Recovered/Not Resolved]
  - Dysgeusia [Not Recovered/Not Resolved]
  - Skin odour abnormal [Not Recovered/Not Resolved]

NARRATIVE: CASE EVENT DATE: 20150601
